FAERS Safety Report 5194217-9 (Version None)
Quarter: 2006Q4

REPORT INFORMATION
  Report Type: 
  Country: None (occurrence: None)
  Receive Date: 20061228
  Receipt Date: 20061128
  Transmission Date: 20070319
  Serious: Yes (Hospitalization, Other)
  Sender: FDA-Public Use
  Company Number: US-PFIZER INC-2006150479

PATIENT
  Sex: Female

DRUGS (3)
  1. CELEBREX [Suspect]
     Dates: start: 20030125, end: 20030130
  2. BEXTRA [Suspect]
     Dates: start: 20021224, end: 20030417
  3. VIOXX [Suspect]
     Route: 048
     Dates: start: 20020101, end: 20030620

REACTIONS (1)
  - CEREBROVASCULAR ACCIDENT [None]
